FAERS Safety Report 5213069-1 (Version None)
Quarter: 2007Q1

REPORT INFORMATION
  Report Type: 
  Country: None (occurrence: None)
  Receive Date: 20070119
  Receipt Date: 20070112
  Transmission Date: 20070707
  Serious: Yes (Other)
  Sender: FDA-Public Use
  Company Number: 2006PK02679

PATIENT
  Age: 7442 Day
  Sex: Male
  Weight: 75 kg

DRUGS (4)
  1. SEROQUEL [Suspect]
     Indication: PSYCHOTIC DISORDER DUE TO A GENERAL MEDICAL CONDITION
     Dosage: 75 MG TILL 700 MG
     Route: 048
     Dates: start: 20060821, end: 20061109
  2. NEXIUM [Concomitant]
     Indication: PROPHYLAXIS AGAINST GASTROINTESTINAL ULCER
     Route: 048
     Dates: start: 20060501
  3. INDERAL [Concomitant]
     Indication: TACHYCARDIA
     Route: 048
     Dates: start: 20060501
  4. XANOR 0.5 MG [Concomitant]
     Indication: PSYCHOTIC DISORDER DUE TO A GENERAL MEDICAL CONDITION
     Dates: start: 20061002

REACTIONS (2)
  - ANURIA [None]
  - PRIAPISM [None]
